FAERS Safety Report 7527042-1 (Version None)
Quarter: 2011Q2

REPORT INFORMATION
  Report Type: 
  Country: None (occurrence: None)
  Receive Date: 20110606
  Receipt Date: 20110523
  Transmission Date: 20111010
  Serious: Yes (Death)
  Sender: FDA-Public Use
  Company Number: FR-GENENTECH-319488

PATIENT
  Sex: Male

DRUGS (2)
  1. NUTRITIONAL SUPPLEMENT NOS [Concomitant]
     Indication: PRODUCT USED FOR UNKNOWN INDICATION
  2. RANIBIZUMAB [Suspect]
     Indication: AGE-RELATED MACULAR DEGENERATION
     Dosage: 0.05 ML, UNKNOWN
     Route: 031
     Dates: start: 20080912

REACTIONS (2)
  - MYOCARDIAL INFARCTION [None]
  - ACUTE PULMONARY OEDEMA [None]
